FAERS Safety Report 6040811-2 (Version None)
Quarter: 2009Q1

REPORT INFORMATION
  Report Type: 
  Country: None (occurrence: None)
  Receive Date: 20090116
  Receipt Date: 20080603
  Transmission Date: 20090719
  Serious: No
  Sender: FDA-Public Use
  Company Number: US-BRISTOL-MYERS SQUIBB COMPANY-14213805

PATIENT
  Age: 3 Year
  Sex: Male
  Weight: 14 kg

DRUGS (2)
  1. ABILIFY [Suspect]
     Dosage: STARTED AT 2MG DAILY,INCREASED TO 5MG TID,REDUCED TO 2MG DAILY
  2. CLONIDINE [Concomitant]

REACTIONS (4)
  - ABNORMAL BEHAVIOUR [None]
  - AGGRESSION [None]
  - DYSPHASIA [None]
  - DYSPHEMIA [None]
